FAERS Safety Report 4302589-X (Version None)
Quarter: 2004Q1

REPORT INFORMATION
  Report Type: 
  Country: None (occurrence: None)
  Receive Date: 20040224
  Receipt Date: 20031209
  Transmission Date: 20041129
  Serious: Yes (Death, Hospitalization)
  Sender: FDA-Public Use
  Company Number: GB-BRISTOL-MYERS SQUIBB COMPANY-12454161

PATIENT
  Age: 81 Year
  Sex: Female

DRUGS (2)
  1. HYDREA [Suspect]
     Indication: LUNG CANCER METASTATIC
     Dosage: DURATION: ^NUMBER OF YEARS^
     Route: 048
  2. ASPIRIN [Concomitant]

REACTIONS (2)
  - LUNG CANCER METASTATIC [None]
  - PLEURAL EFFUSION [None]
